FAERS Safety Report 16256471 (Version 1)
Quarter: 2019Q2

REPORT INFORMATION
  Report Type: Spontaneous
  Country: US (occurrence: US)
  Receive Date: 20190430
  Receipt Date: 20190430
  Transmission Date: 20190711
  Serious: No
  Sender: FDA-Public Use
  Company Number: US-ABBVIE-18S-163-2474316-00

PATIENT
  Sex: Female

DRUGS (1)
  1. CREON [Suspect]
     Active Substance: PANCRELIPASE AMYLASE\PANCRELIPASE LIPASE\PANCRELIPASE PROTEASE
     Indication: PRODUCT USED FOR UNKNOWN INDICATION
     Route: 048
     Dates: start: 2012

REACTIONS (16)
  - Dyspnoea [Unknown]
  - Hypersensitivity [Unknown]
  - Swollen tongue [Recovered/Resolved]
  - Swollen tongue [Unknown]
  - Foreign body in respiratory tract [Unknown]
  - Feeling hot [Unknown]
  - Dyspnoea [Recovered/Resolved]
  - Hypersensitivity [Recovered/Resolved]
  - Choking sensation [Recovered/Resolved]
  - Foreign body in respiratory tract [Recovered/Resolved]
  - Panic attack [Unknown]
  - Palpitations [Recovered/Resolved]
  - Choking sensation [Unknown]
  - Feeling hot [Recovered/Resolved]
  - Palpitations [Unknown]
  - Panic attack [Recovered/Resolved]

NARRATIVE: CASE EVENT DATE: 20180903
